FAERS Safety Report 4892024-5 (Version None)
Quarter: 2006Q1

REPORT INFORMATION
  Report Type: 
  Country: None (occurrence: None)
  Receive Date: 20060123
  Receipt Date: 20060112
  Transmission Date: 20060701
  Serious: No
  Sender: FDA-Public Use
  Company Number: 221041

PATIENT
  Age: 13 Year
  Sex: Male
  Weight: 34.6 kg

DRUGS (1)
  1. NUTROPIN AQ [Suspect]
     Indication: RADIOTHERAPY
     Dosage: 0.03 MG/KG 1/WEEK SUBCUTANEOUS
     Route: 058
     Dates: end: 20051221

REACTIONS (2)
  - NEOPLASM RECURRENCE [None]
  - PRIMITIVE NEUROECTODERMAL TUMOUR [None]
